FAERS Safety Report 18874347 (Version 1)
Quarter: 2021Q1

REPORT INFORMATION
  Report Type: Spontaneous
  Country: FR (occurrence: FR)
  Receive Date: 20210210
  Receipt Date: 20210210
  Transmission Date: 20210420
  Serious: Yes (Other)
  Sender: FDA-Public Use
  Company Number: FR-PFIZER INC-2021097098

PATIENT
  Age: 32 Year
  Sex: Male

DRUGS (1)
  1. SULFASALAZINE. [Suspect]
     Active Substance: SULFASALAZINE
     Indication: AXIAL SPONDYLOARTHRITIS
     Dosage: UNK
     Dates: start: 200908

REACTIONS (5)
  - Mononucleosis syndrome [Recovered/Resolved]
  - Face oedema [Recovered/Resolved]
  - Pneumonitis [Unknown]
  - Drug reaction with eosinophilia and systemic symptoms [Recovered/Resolved]
  - Hepatitis [Unknown]

NARRATIVE: CASE EVENT DATE: 2009
